FAERS Safety Report 20910349 (Version 1)
Quarter: 2022Q2

REPORT INFORMATION
  Report Type: Spontaneous
  Country: CN (occurrence: CN)
  Receive Date: 20220603
  Receipt Date: 20220603
  Transmission Date: 20220721
  Serious: Yes (Other)
  Sender: FDA-Public Use
  Company Number: CN-BoehringerIngelheim-2022-BI-173073

PATIENT
  Age: 72 Year
  Sex: Male
  Weight: 80 kg

DRUGS (4)
  1. ALTEPLASE [Suspect]
     Active Substance: ALTEPLASE
     Indication: Thrombolysis
     Route: 042
     Dates: start: 20220520
  2. ALTEPLASE [Suspect]
     Active Substance: ALTEPLASE
     Route: 042
     Dates: end: 20220520
  3. WATER FOR INJECTION [Concomitant]
     Active Substance: WATER
     Indication: Drug therapy
     Route: 042
     Dates: start: 20220520
  4. WATER FOR INJECTION [Concomitant]
     Active Substance: WATER
     Route: 042
     Dates: end: 20220520

REACTIONS (4)
  - Chest discomfort [Recovering/Resolving]
  - Dizziness [Recovering/Resolving]
  - Palpitations [Recovering/Resolving]
  - Haematemesis [Recovered/Resolved]

NARRATIVE: CASE EVENT DATE: 20220520
